FAERS Safety Report 19407713 (Version 1)
Quarter: 2021Q2

REPORT INFORMATION
  Report Type: Spontaneous
  Country: CN (occurrence: CN)
  Receive Date: 20210611
  Receipt Date: 20210611
  Transmission Date: 20210717
  Serious: Yes (Hospitalization)
  Sender: FDA-Public Use
  Company Number: CN-PFIZER INC-2021623302

PATIENT
  Age: 90 Year
  Sex: Male
  Weight: 75 kg

DRUGS (1)
  1. SOLU?MEDROL [Suspect]
     Active Substance: METHYLPREDNISOLONE SODIUM SUCCINATE
     Indication: ANTI-INFECTIVE THERAPY
     Dosage: 20 MG, 2X/DAY
     Route: 041
     Dates: start: 20210513, end: 20210515

REACTIONS (2)
  - Off label use [Unknown]
  - Hypernatraemia [Recovering/Resolving]

NARRATIVE: CASE EVENT DATE: 20210515
